FAERS Safety Report 24981688 (Version 1)
Quarter: 2025Q1

REPORT INFORMATION
  Report Type: Spontaneous
  Country: US (occurrence: None)
  Receive Date: 20250217
  Receipt Date: 20250217
  Transmission Date: 20250409
  Serious: Yes (Hospitalization)
  Sender: FDA-CTU
  Company Number: None

PATIENT
  Age: 49 Year
  Sex: Female
  Weight: 100.35 kg

DRUGS (4)
  1. SOFOSBUVIR\VELPATASVIR [Suspect]
     Active Substance: SOFOSBUVIR\VELPATASVIR
     Dosage: FREQUENCY : DAILY;?
     Route: 048
     Dates: start: 20241015, end: 20250105
  2. TIZANIDINE [Concomitant]
     Active Substance: TIZANIDINE
  3. LOSARTAN [Concomitant]
     Active Substance: LOSARTAN
  4. AMOXICILLIN [Concomitant]
     Active Substance: AMOXICILLIN

REACTIONS (5)
  - Weight decreased [None]
  - Abdominal discomfort [None]
  - Abdominal infection [None]
  - Memory impairment [None]
  - Dyspepsia [None]
